FAERS Safety Report 7861120-2 (Version None)
Quarter: 2011Q4

REPORT INFORMATION
  Report Type: 
  Country: None (occurrence: None)
  Receive Date: 20111027
  Receipt Date: 20111017
  Transmission Date: 20120403
  Serious: Yes (Hospitalization)
  Sender: FDA-Public Use
  Company Number: US-ABBOTT-10P-163-0689460-01

PATIENT
  Sex: Female

DRUGS (13)
  1. PROTONIX [Concomitant]
     Indication: PROPHYLAXIS
  2. FLAGYL [Concomitant]
     Indication: CROHN'S DISEASE
     Dates: start: 20100924
  3. BUDESONIDE [Concomitant]
     Indication: PRODUCT USED FOR UNKNOWN INDICATION
     Dates: start: 20101011, end: 20101109
  4. POTASSIUM CHLORIDE [Concomitant]
     Indication: HYPOKALAEMIA
     Dates: start: 20090727
  5. FLAGYL [Concomitant]
     Indication: INFECTION PROPHYLAXIS
     Dates: start: 20090708, end: 20090729
  6. NORPRAMIN [Concomitant]
     Indication: PRODUCT USED FOR UNKNOWN INDICATION
     Dates: start: 20090625
  7. VITAMIN D [Concomitant]
     Indication: PRODUCT USED FOR UNKNOWN INDICATION
     Dates: start: 20090625
  8. CIPROFLOXACIN [Concomitant]
     Indication: CROHN'S DISEASE
     Dates: start: 20100924
  9. CORTICOSTEROIDS [Concomitant]
     Indication: CROHN'S DISEASE
  10. HUMIRA [Suspect]
     Indication: CROHN'S DISEASE
     Route: 058
     Dates: end: 20090924
  11. PROTONIX [Concomitant]
     Indication: OESOPHAGITIS
     Dates: start: 20090715
  12. FOLIC ACID [Concomitant]
     Indication: PRODUCT USED FOR UNKNOWN INDICATION
     Dates: start: 20080831
  13. CYANOCOBALAMIN [Concomitant]
     Indication: PRODUCT USED FOR UNKNOWN INDICATION
     Dates: start: 20090701

REACTIONS (1)
  - SMALL INTESTINAL OBSTRUCTION [None]
